FAERS Safety Report 12431881 (Version 1)
Quarter: 2016Q2

REPORT INFORMATION
  Report Type: Report from Study
  Country: BR (occurrence: BR)
  Receive Date: 20160603
  Receipt Date: 20160603
  Transmission Date: 20160815
  Serious: Yes (Hospitalization)
  Sender: FDA-Public Use
  Company Number: PHHY2016BR075686

PATIENT
  Sex: Female
  Weight: 74 kg

DRUGS (2)
  1. DASATINIB [Suspect]
     Active Substance: DASATINIB
     Indication: CHRONIC MYELOID LEUKAEMIA
     Route: 065
  2. GLIVEC [Suspect]
     Active Substance: IMATINIB MESYLATE
     Indication: CHRONIC MYELOID LEUKAEMIA
     Dosage: 2 DF (800 MG), QD
     Route: 048

REACTIONS (6)
  - Deformity [Unknown]
  - Swelling [Unknown]
  - Malaise [Unknown]
  - Vomiting [Unknown]
  - Wrong technique in product usage process [Unknown]
  - Drug intolerance [Unknown]
